FAERS Safety Report 11696165 (Version 3)
Quarter: 2016Q1

REPORT INFORMATION
  Report Type: Report from Study
  Country: US (occurrence: US)
  Receive Date: 20151104
  Receipt Date: 20160203
  Transmission Date: 20160525
  Serious: Yes (Other)
  Sender: FDA-Public Use
  Company Number: US-BAYER-2015-435042

PATIENT
  Age: 65 Year
  Sex: Female
  Weight: 51.3 kg

DRUGS (18)
  1. NEXAVAR [Suspect]
     Active Substance: SORAFENIB
     Indication: HEPATIC CANCER
     Dosage: 400 MG, BID
     Route: 048
  2. NADOLOL. [Concomitant]
     Active Substance: NADOLOL
  3. HYDROCHLOROTHIAZIDE. [Concomitant]
     Active Substance: HYDROCHLOROTHIAZIDE
  4. POTASSIUM [Concomitant]
     Active Substance: POTASSIUM
  5. ALDACTONE [Concomitant]
     Active Substance: SPIRONOLACTONE
  6. HYDROXYZINE [Concomitant]
     Active Substance: HYDROXYZINE\HYDROXYZINE HYDROCHLORIDE
  7. ZOFRAN [Concomitant]
     Active Substance: ONDANSETRON HYDROCHLORIDE
  8. DIPHENOXYLATE W/ATROPINE SULFATE [Concomitant]
     Active Substance: ATROPINE SULFATE\DIPHENOXYLATE
  9. BACID [Concomitant]
     Active Substance: LACTOBACILLUS ACIDOPHILUS
  10. NEXAVAR [Suspect]
     Active Substance: SORAFENIB
     Indication: HEPATIC CANCER
     Dosage: 400 MG, BID
     Route: 048
     Dates: start: 20150826
  11. NEXAVAR [Suspect]
     Active Substance: SORAFENIB
     Indication: HEPATIC CANCER
     Dosage: 400 MG, BID
     Route: 048
     Dates: start: 20150828
  12. VITAMIN B1 [Concomitant]
     Active Substance: THIAMINE HYDROCHLORIDE
  13. CHOLESTYRAMINE. [Concomitant]
     Active Substance: CHOLESTYRAMINE
  14. NEXAVAR [Suspect]
     Active Substance: SORAFENIB
     Indication: HEPATIC CANCER
     Dosage: 400 MG, BID
     Route: 048
     Dates: start: 20150826
  15. PROTONIX [Concomitant]
     Active Substance: PANTOPRAZOLE SODIUM
  16. LASIX [Concomitant]
     Active Substance: FUROSEMIDE
  17. LACTULOSE. [Concomitant]
     Active Substance: LACTULOSE
  18. CLOBETASOL [Concomitant]
     Active Substance: CLOBETASOL

REACTIONS (13)
  - Somnolence [Unknown]
  - Fatigue [Unknown]
  - Weight decreased [Recovering/Resolving]
  - Food poisoning [Recovering/Resolving]
  - Feeding disorder [Unknown]
  - Diarrhoea [Unknown]
  - Abdominal pain upper [Unknown]
  - Chest pain [Unknown]
  - Diarrhoea [Recovering/Resolving]
  - Constipation [Unknown]
  - Fatigue [Unknown]
  - Clostridium difficile infection [Recovering/Resolving]
  - Pruritus [Unknown]

NARRATIVE: CASE EVENT DATE: 2015
